FAERS Safety Report 16282073 (Version 5)
Quarter: 2019Q3

REPORT INFORMATION
  Report Type: Spontaneous
  Country: AE (occurrence: AE)
  Receive Date: 20190507
  Receipt Date: 20190704
  Transmission Date: 20191004
  Serious: Yes (Other)
  Sender: FDA-Public Use
  Company Number: AE-GLAXOSMITHKLINE-AE2019080403

PATIENT
  Age: 28 Year
  Sex: Female

DRUGS (1)
  1. DICLOFENAC [Suspect]
     Active Substance: DICLOFENAC
     Indication: PAIN
     Dosage: UNK
     Route: 030
     Dates: start: 20190327

REACTIONS (6)
  - Injection site discolouration [Unknown]
  - Gangrene [Unknown]
  - Injection site pain [Unknown]
  - Injection site inflammation [Recovering/Resolving]
  - Injection site necrosis [Unknown]
  - Wound [Unknown]

NARRATIVE: CASE EVENT DATE: 20190330
